FAERS Safety Report 23967603 (Version 1)
Quarter: 2024Q2

REPORT INFORMATION
  Report Type: Spontaneous
  Country: US (occurrence: US)
  Receive Date: 20240612
  Receipt Date: 20240612
  Transmission Date: 20240716
  Serious: No
  Sender: FDA-Public Use
  Company Number: US-SA-SAC20240611000210

PATIENT

DRUGS (4)
  1. DUPILUMAB [Suspect]
     Active Substance: DUPILUMAB
     Indication: Dermatitis atopic
     Dosage: UNK
     Route: 065
  2. ADBRY [Suspect]
     Active Substance: TRALOKINUMAB-LDRM
     Dosage: 50 MG
  3. ADBRY [Suspect]
     Active Substance: TRALOKINUMAB-LDRM
     Dosage: 100 MG
  4. ADBRY [Suspect]
     Active Substance: TRALOKINUMAB-LDRM
     Dosage: 200 MG
     Dates: start: 202312

REACTIONS (2)
  - Blood creatine phosphokinase increased [Unknown]
  - Drug ineffective [Unknown]

NARRATIVE: CASE EVENT DATE: 20240101
